FAERS Safety Report 8649981 (Version 3)
Quarter: 2013Q1

REPORT INFORMATION
  Report Type: Report from Study
  Country: CH (occurrence: CH)
  Receive Date: 20120705
  Receipt Date: 20130128
  Transmission Date: 20140127
  Serious: Yes (Life-Threatening, Disabling)
  Sender: FDA-Public Use
  Company Number: CH-GENZYME-CLOF-1002200

PATIENT
  Age: 64 Year
  Sex: Female
  Weight: 50 kg

DRUGS (9)
  1. EVOLTRA [Suspect]
     Indication: ACUTE MYELOID LEUKAEMIA
     Dosage: 15.4 MG, QD
     Route: 042
     Dates: start: 20120626, end: 20120626
  2. AMSACRINE [Suspect]
     Indication: ACUTE MYELOID LEUKAEMIA
     Dosage: 185 MG, UNK
     Route: 042
     Dates: start: 20120627, end: 20120627
  3. AMSACRINE [Suspect]
     Dosage: 185 MG, UNK
     Route: 042
     Dates: start: 20120627
  4. CYTARABINE [Suspect]
     Indication: ACUTE MYELOID LEUKAEMIA
     Dosage: 1540 MG, QD
     Route: 042
     Dates: start: 20120626, end: 20120627
  5. METHYLPREDNISOLONE [Concomitant]
     Indication: PROPHYLAXIS OF NAUSEA AND VOMITING
     Dosage: 125 MG, UNK
     Route: 042
     Dates: start: 20120626
  6. LORAZEPAM [Concomitant]
     Indication: MOOD ALTERED
     Dosage: 1 MG, UNK
     Route: 048
     Dates: start: 20120626
  7. ONDASETRON [Concomitant]
     Indication: PROPHYLAXIS OF NAUSEA AND VOMITING
     Dosage: 8 MG, UNK
     Route: 042
     Dates: start: 20120626
  8. RANITIDINE [Concomitant]
     Indication: PROPHYLAXIS
     Dosage: 300 MG, UNK
     Route: 048
     Dates: start: 20120626
  9. ALLOPURINOL [Concomitant]
     Indication: PROPHYLAXIS
     Dosage: 300 MG, UNK
     Route: 048
     Dates: start: 20120626

REACTIONS (1)
  - Electrocardiogram QT prolonged [Recovered/Resolved]
